FAERS Safety Report 24727448 (Version 1)
Quarter: 2024Q4

REPORT INFORMATION
  Report Type: Spontaneous
  Country: FR (occurrence: FR)
  Receive Date: 20241212
  Receipt Date: 20241212
  Transmission Date: 20250115
  Serious: Yes (Death, Other)
  Sender: IDORSIA PHARMACEUTICALS
  Company Number: None

PATIENT
  Age: 55 Year
  Sex: Male

DRUGS (11)
  1. QUVIVIQ [Interacting]
     Active Substance: DARIDOREXANT
     Indication: Product used for unknown indication
     Dosage: 50 MG, QD
     Route: 048
     Dates: start: 20241109
  2. LOXAPINE [Interacting]
     Active Substance: LOXAPINE
     Indication: Agitation
     Dosage: 250 MG, PRN
     Route: 030
     Dates: start: 20241109, end: 20241109
  3. CYAMEMAZINE [Interacting]
     Active Substance: CYAMEMAZINE
     Indication: Schizophrenia
     Route: 048
     Dates: start: 202410
  4. HALDOL [Interacting]
     Active Substance: HALOPERIDOL
     Indication: Schizophrenia
     Dosage: 70 DROPS IN THE MORNING + 50 DROPS IN THE EVENING
     Route: 048
  5. PERICIAZINE [Interacting]
     Active Substance: PERICIAZINE
     Indication: Schizophrenia
     Dosage: 20 DROPS 3 TIMES A DAY
     Route: 048
  6. QUETIAPINE [Interacting]
     Active Substance: QUETIAPINE
     Indication: Schizophrenia
     Dosage: 300 MG TWICE A DAY
     Route: 048
  7. OXAZEPAM [Interacting]
     Active Substance: OXAZEPAM
     Indication: Anxiety
     Dosage: 50 MG 3 TIMES A DAY
     Route: 048
  8. CLOMIPRAMINE HYDROCHLORIDE [Interacting]
     Active Substance: CLOMIPRAMINE HYDROCHLORIDE
     Indication: Schizoaffective disorder depressive type
     Dosage: 75 MG TWICE A DAY
     Route: 048
  9. LAMOTRIGINE [Interacting]
     Active Substance: LAMOTRIGINE
     Indication: Epilepsy
     Dosage: 50 MG TWICE A DAY
     Route: 048
  10. ANETHOLTRITHION [Concomitant]
     Active Substance: ANETHOLTRITHION
  11. TROPATEPINE HYDROCHLORIDE [Concomitant]
     Active Substance: TROPATEPINE HYDROCHLORIDE

REACTIONS (4)
  - Death [Fatal]
  - Asphyxia [Fatal]
  - Drug interaction [Fatal]
  - Sedation [Fatal]

NARRATIVE: CASE EVENT DATE: 20241109
